FAERS Safety Report 10090114 (Version 1)
Quarter: 2014Q2

REPORT INFORMATION
  Report Type: Spontaneous
  Country: US (occurrence: US)
  Receive Date: 20140421
  Receipt Date: 20140421
  Transmission Date: 20141212
  Serious: No
  Sender: FDA-Public Use
  Company Number: US-PFIZER INC-2014107282

PATIENT
  Age: 64 Year
  Sex: Male
  Weight: 93.42 kg

DRUGS (1)
  1. SUTENT [Suspect]
     Indication: RENAL CELL CARCINOMA
     Dosage: 37.5 MG, CYCLIC (DAILY 4 WEEKS ON AND 2 WEEKS OFF)
     Dates: start: 201012, end: 2011

REACTIONS (2)
  - Disease progression [Unknown]
  - Renal cell carcinoma [Unknown]
